FAERS Safety Report 6846056-8 (Version None)
Quarter: 2010Q3

REPORT INFORMATION
  Report Type: 
  Country: None (occurrence: None)
  Receive Date: 20100715
  Receipt Date: 20070928
  Transmission Date: 20110219
  Serious: Yes (Other)
  Sender: FDA-Public Use
  Company Number: US-PFIZER INC-2007073115

PATIENT
  Sex: Female
  Weight: 75.8 kg

DRUGS (3)
  1. CHANTIX [Suspect]
     Indication: SMOKING CESSATION THERAPY
     Dates: start: 20070823, end: 20070901
  2. TEMAZEPAM [Concomitant]
  3. HYDROCODONE [Concomitant]

REACTIONS (5)
  - ASTHENIA [None]
  - DYSGEUSIA [None]
  - MALAISE [None]
  - NAUSEA [None]
  - VOMITING [None]
